FAERS Safety Report 6617469-4 (Version None)
Quarter: 2010Q1

REPORT INFORMATION
  Report Type: 
  Country: None (occurrence: None)
  Receive Date: 20100308
  Receipt Date: 20100223
  Transmission Date: 20100710
  Serious: Yes (Other)
  Sender: FDA-Public Use
  Company Number: US-JNJFOC-20100210889

PATIENT
  Sex: Female
  Weight: 55.79 kg

DRUGS (4)
  1. DURAGESIC-100 [Suspect]
     Indication: PAIN
     Route: 062
  2. DURAGESIC-100 [Suspect]
     Route: 062
  3. TRILEPTAL [Concomitant]
     Indication: NERVOUS SYSTEM DISORDER
     Route: 048
  4. MOTRIN [Concomitant]
     Indication: PAIN
     Route: 048

REACTIONS (4)
  - DEPRESSION [None]
  - INADEQUATE ANALGESIA [None]
  - PRODUCT ADHESION ISSUE [None]
  - WRONG TECHNIQUE IN DRUG USAGE PROCESS [None]
